FAERS Safety Report 4279533-7 (Version None)
Quarter: 2004Q1

REPORT INFORMATION
  Report Type: 
  Country: None (occurrence: None)
  Receive Date: 20040123
  Receipt Date: 20040113
  Transmission Date: 20041129
  Serious: Yes (Hospitalization, Other)
  Sender: FDA-Public Use
  Company Number: US-JNJFOC-20040102339

PATIENT
  Sex: Male

DRUGS (6)
  1. REOPRO [Suspect]
     Indication: CORONARY ARTERY SURGERY
     Dosage: INTRAVENOUS
     Route: 042
     Dates: start: 20040102
  2. HEPARIN [Suspect]
     Indication: CORONARY ARTERY SURGERY
     Dates: start: 20040102
  3. INTEGRILIN [Concomitant]
  4. ASPIRIN [Concomitant]
  5. PLAVIX [Concomitant]
  6. ARGATROBAN (ARGATROBAN) [Concomitant]

REACTIONS (2)
  - HEPARIN-INDUCED THROMBOCYTOPENIA [None]
  - THROMBOSIS [None]
